FAERS Safety Report 5701449-7 (Version None)
Quarter: 2008Q2

REPORT INFORMATION
  Report Type: 
  Country: None (occurrence: None)
  Receive Date: 20080407
  Receipt Date: 20080321
  Transmission Date: 20081010
  Serious: Yes (Other)
  Sender: FDA-Public Use
  Company Number: 2008JP001486

PATIENT
  Age: 22 Year
  Sex: Female

DRUGS (6)
  1. PROGRAF [Suspect]
     Dosage: 3 MG, ORAL
     Route: 048
     Dates: start: 20080304, end: 20080309
  2. PREDNISOLONE [Concomitant]
  3. TAKEPRON (LANSOPRAZOLE) ORODISPERSIBLE CR TABLET [Concomitant]
  4. BAYASPIRIN PER ORAL NOS [Concomitant]
  5. ONEALFA (ALFACALCIDOL) PER ORAL NOS [Concomitant]
  6. BONALON (ALENDRONIC ACID) PER ORAL NOS [Concomitant]

REACTIONS (1)
  - NEUROPSYCHIATRIC LUPUS [None]
